FAERS Safety Report 4532235-1 (Version None)
Quarter: 2004Q4

REPORT INFORMATION
  Report Type: 
  Country: None (occurrence: None)
  Receive Date: 20041217
  Receipt Date: 20041201
  Transmission Date: 20050328
  Serious: Yes (Hospitalization, Other)
  Sender: FDA-Public Use
  Company Number: 206833

PATIENT
  Age: 48 Year
  Sex: Female

DRUGS (3)
  1. AVONEX [Suspect]
     Indication: MULTIPLE SCLEROSIS
     Dosage: 30 UG; QW; IM
     Route: 030
  2. AVONEX [Suspect]
     Indication: MULTIPLE SCLEROSIS
     Dosage: 30 UG; QW; IM
     Route: 030
     Dates: end: 20040801
  3. METHYLPREDNISOLONE [Concomitant]

REACTIONS (7)
  - GLOMERULONEPHRITIS PROLIFERATIVE [None]
  - HYPERTENSION [None]
  - LUPUS NEPHRITIS [None]
  - MENTAL STATUS CHANGES [None]
  - NEPHROTIC SYNDROME [None]
  - RENAL FAILURE [None]
  - SYSTEMIC LUPUS ERYTHEMATOSUS [None]
